FAERS Safety Report 23872413 (Version 1)
Quarter: 2024Q2

REPORT INFORMATION
  Report Type: Spontaneous
  Country: US (occurrence: US)
  Receive Date: 20240520
  Receipt Date: 20240520
  Transmission Date: 20240715
  Serious: No
  Sender: FDA-Public Use
  Company Number: US-ABBVIE-5762903

PATIENT
  Sex: Female

DRUGS (1)
  1. LASTACAFT [Suspect]
     Active Substance: ALCAFTADINE
     Indication: Product used for unknown indication
     Route: 047

REACTIONS (3)
  - Eye disorder [Unknown]
  - Eye pruritus [Unknown]
  - Lacrimation increased [Unknown]
